FAERS Safety Report 9351747 (Version 1)
Quarter: 2013Q2

REPORT INFORMATION
  Report Type: Spontaneous
  Country: DE (occurrence: DE)
  Receive Date: 20130617
  Receipt Date: 20130617
  Transmission Date: 20140414
  Serious: Yes (Other)
  Sender: FDA-Public Use
  Company Number: DE-BIOGENIDEC-2013BI053298

PATIENT
  Age: 0 Year
  Sex: Female

DRUGS (1)
  1. TYSABRI [Suspect]
     Indication: MATERNAL EXPOSURE TIMING UNSPECIFIED
     Dosage: TYSABRI INFUSION SOTPPED APPROXIMATELY 1 MONTH BEFORE CONCEPTION
     Route: 064
     Dates: start: 20091104, end: 20120702

REACTIONS (3)
  - Low birth weight baby [Unknown]
  - Premature baby [Recovered/Resolved]
  - Apgar score low [Recovered/Resolved]
